FAERS Safety Report 19146501 (Version 1)
Quarter: 2021Q2

REPORT INFORMATION
  Report Type: Spontaneous
  Country: FR (occurrence: FR)
  Receive Date: 20210416
  Receipt Date: 20210416
  Transmission Date: 20210717
  Serious: Yes (Other)
  Sender: FDA-Public Use
  Company Number: FR-MYLANLABS-2021M1022213

PATIENT
  Age: 44 Year
  Sex: Male

DRUGS (2)
  1. ALPRAZOLAM MYLAN [Suspect]
     Active Substance: ALPRAZOLAM
     Indication: PRODUCT USED FOR UNKNOWN INDICATION
     Dosage: UNK
     Dates: start: 2020
  2. PREGABALIN MYLAN [Suspect]
     Active Substance: PREGABALIN
     Indication: PRODUCT USED FOR UNKNOWN INDICATION
     Dosage: 1 DOSAGE FORM, PRN

REACTIONS (2)
  - Drug abuse [Unknown]
  - Homicide [Not Recovered/Not Resolved]

NARRATIVE: CASE EVENT DATE: 202012
